FAERS Safety Report 17928253 (Version 1)
Quarter: 2020Q2

REPORT INFORMATION
  Report Type: Spontaneous
  Country: US (occurrence: US)
  Receive Date: 20200622
  Receipt Date: 20200622
  Transmission Date: 20200714
  Serious: Yes (Hospitalization)
  Sender: FDA-Public Use
  Company Number: None

PATIENT
  Age: 65 Year
  Sex: Male
  Weight: 76.4 kg

DRUGS (4)
  1. DEXAMETHASONE 10MG [Concomitant]
     Dates: start: 20200525
  2. TOCILIZUMAB. [Concomitant]
     Active Substance: TOCILIZUMAB
     Dates: start: 20200527, end: 20200527
  3. REMDESIVIR. [Suspect]
     Active Substance: REMDESIVIR
     Indication: COVID-19
     Route: 042
     Dates: start: 20200522, end: 20200526
  4. TOCILIZUMAB. [Suspect]
     Active Substance: TOCILIZUMAB
     Indication: COVID-19
     Route: 042
     Dates: start: 20200527, end: 20200527

REACTIONS (2)
  - Blood culture positive [None]
  - Candida test positive [None]

NARRATIVE: CASE EVENT DATE: 20200614
